FAERS Safety Report 5779199-0 (Version None)
Quarter: 2008Q2

REPORT INFORMATION
  Report Type: 
  Country: None (occurrence: None)
  Receive Date: 20080617
  Receipt Date: 20080602
  Transmission Date: 20081010
  Serious: Yes (Death, Hospitalization)
  Sender: FDA-Public Use
  Company Number: GXKR2008JP04694

PATIENT
  Age: 5 Year
  Sex: Female

DRUGS (4)
  1. DEXAMETHASONE [Suspect]
     Indication: CHEMOTHERAPY
     Dosage: 12 MG/M2, QD; ORAL
     Route: 048
  2. METHOTREXATE [Suspect]
     Indication: CHEMOTHERAPY
     Dosage: 9 MG, QD; INTRATHECAL
     Route: 039
  3. VINCRISTINE [Suspect]
     Indication: CHEMOTHERAPY
     Dosage: 2 MG/M2, QD; INTRAVENOUS
     Route: 042
  4. ASPARAGINASE (ASPARAGINASE) [Suspect]
     Indication: CHEMOTHERAPY
     Dosage: 10000 IU/M2,QD; INTRAMUSCULAR
     Route: 030

REACTIONS (16)
  - ABDOMINAL PAIN UPPER [None]
  - ASCITES [None]
  - COAGULOPATHY [None]
  - DEPRESSED LEVEL OF CONSCIOUSNESS [None]
  - DISEASE RECURRENCE [None]
  - DISSEMINATED INTRAVASCULAR COAGULATION [None]
  - FATIGUE [None]
  - HAEMORRHAGE [None]
  - HEPATIC NECROSIS [None]
  - HEPATOMEGALY [None]
  - HERPES ZOSTER [None]
  - IMMUNE SYSTEM DISORDER [None]
  - MULTI-ORGAN DISORDER [None]
  - PERICARDIAL EFFUSION [None]
  - PLEURAL EFFUSION [None]
  - RESPIRATORY RATE INCREASED [None]
